FAERS Safety Report 8519928 (Version 2)
Quarter: 2012Q4

REPORT INFORMATION
  Report Type: 
  Country: US (occurrence: US)
  Receive Date: 20120418
  Receipt Date: 20121120
  Transmission Date: 20130627
  Serious: No
  Sender: FDA-Public Use
  Company Number: US-ASTRAZENECA-2012SE11967

PATIENT
  Age: 63 Year
  Sex: Female
  Weight: 95.3 kg

DRUGS (8)
  1. NEXIUM [Suspect]
     Indication: GASTROOESOPHAGEAL REFLUX DISEASE
     Route: 048
     Dates: start: 201201
  2. NEXIUM [Suspect]
     Indication: REGURGITATION
     Route: 048
     Dates: start: 201201
  3. PRILOSEC OTC [Suspect]
     Route: 048
  4. OMEPRAZOLE [Suspect]
     Route: 048
  5. XANAX [Concomitant]
     Indication: ANXIETY
  6. SYNTHROID [Concomitant]
     Indication: THYROID DISORDER
  7. ELAVIL [Concomitant]
     Indication: DEPRESSION
  8. HYOSCYAMINE [Concomitant]
     Indication: OESOPHAGEAL SPASM

REACTIONS (5)
  - Irritable bowel syndrome [Unknown]
  - Oesophageal spasm [Unknown]
  - Eructation [Unknown]
  - Drug dose omission [Unknown]
  - Drug ineffective [Unknown]
